FAERS Safety Report 20974976 (Version 1)
Quarter: 2022Q2

REPORT INFORMATION
  Report Type: Spontaneous
  Country: US (occurrence: US)
  Receive Date: 20220617
  Receipt Date: 20220617
  Transmission Date: 20220721
  Serious: No
  Sender: FDA-Public Use
  Company Number: US-PFIZER INC-PV202200003904

PATIENT
  Age: 74 Year
  Sex: Female

DRUGS (9)
  1. ESTROGENS, CONJUGATED [Suspect]
     Active Substance: ESTROGENS, CONJUGATED
     Indication: Hot flush
     Route: 048
  2. ESTROGENS, CONJUGATED [Suspect]
     Active Substance: ESTROGENS, CONJUGATED
     Indication: Pain in extremity
  3. ESTRADIOL [Concomitant]
     Active Substance: ESTRADIOL
     Indication: Hot flush
     Dosage: FORMULATION: PATCH,0.05/0.14MG
     Route: 062
  4. ESTRADIOL [Concomitant]
     Active Substance: ESTRADIOL
     Indication: Pain in extremity
  5. OZEMPIC [Concomitant]
     Active Substance: SEMAGLUTIDE
     Indication: Glucose tolerance impaired
     Dosage: UNK DF 9 (1 WEEKS)
  6. AMOXICILLIN\CLARITHROMYCIN\ESOMEPRAZOLE [Concomitant]
     Active Substance: AMOXICILLIN\CLARITHROMYCIN\ESOMEPRAZOLE
     Indication: Overweight
     Dosage: FORMULATION: PILL
     Route: 048
  7. AMOXICILLIN\CLARITHROMYCIN\ESOMEPRAZOLE [Concomitant]
     Active Substance: AMOXICILLIN\CLARITHROMYCIN\ESOMEPRAZOLE
     Indication: Dyspepsia
  8. EFFEXOR [Concomitant]
     Active Substance: VENLAFAXINE HYDROCHLORIDE
     Indication: Pain in extremity
     Dosage: 75 MG, 1X/DAY
     Route: 048
  9. EFFEXOR [Concomitant]
     Active Substance: VENLAFAXINE HYDROCHLORIDE
     Indication: Fibromyalgia

REACTIONS (3)
  - Drug ineffective [Unknown]
  - Hot flush [Recovered/Resolved]
  - Pain [Recovered/Resolved]
